FAERS Safety Report 9969733 (Version 1)
Quarter: 2014Q1

REPORT INFORMATION
  Report Type: Spontaneous
  Country: US (occurrence: None)
  Receive Date: 20140304
  Receipt Date: 20140304
  Transmission Date: 20141002
  Serious: Yes (Life-Threatening, Hospitalization, Disabling)
  Sender: FDA-Public Use
  Company Number: None

PATIENT
  Sex: Male
  Weight: 61.69 kg

DRUGS (1)
  1. CIPROFLOXACIN, 500 MG, WEST-WARD [Suspect]
     Indication: URINARY TRACT INFECTION
     Dosage: TAKEN BY MOUTH

REACTIONS (13)
  - Dizziness [None]
  - Sensory disturbance [None]
  - Cough [None]
  - Palpitations [None]
  - Vertigo [None]
  - Movement disorder [None]
  - Heart rate irregular [None]
  - Aortic aneurysm [None]
  - Cardiomegaly [None]
  - Pericardial effusion [None]
  - Arthralgia [None]
  - Tendon pain [None]
  - Abasia [None]
